FAERS Safety Report 7033753-7 (Version None)
Quarter: 2010Q4

REPORT INFORMATION
  Report Type: 
  Country: None (occurrence: None)
  Receive Date: 20101007
  Receipt Date: 20100927
  Transmission Date: 20110411
  Serious: Yes (Other)
  Sender: FDA-Public Use
  Company Number: PHHY2010US64423

PATIENT
  Sex: Female

DRUGS (2)
  1. RECLAST [Suspect]
     Dosage: UNK
     Dates: start: 20090501
  2. RECLAST [Suspect]
     Dosage: UNK
     Dates: start: 20100504

REACTIONS (2)
  - ERYTHEMA [None]
  - HERPES ZOSTER [None]
